FAERS Safety Report 6790935-7 (Version None)
Quarter: 2010Q2

REPORT INFORMATION
  Report Type: 
  Country: None (occurrence: None)
  Receive Date: 20100624
  Receipt Date: 20100610
  Transmission Date: 20101027
  Serious: Yes (Other)
  Sender: FDA-Public Use
  Company Number: GB-PFIZER INC-2010072551

PATIENT
  Age: 55 Year
  Sex: Female

DRUGS (3)
  1. EXEMESTANE [Suspect]
     Indication: BREAST CANCER
     Dosage: UNK
     Dates: start: 20050713
  2. PROZAC [Concomitant]
     Indication: DEPRESSION
     Dosage: 20 MG, UNK
     Route: 048
     Dates: start: 20080101
  3. PROPRANOLOL [Concomitant]
     Indication: HEADACHE
     Dosage: 40 MG, UNK
     Route: 048
     Dates: start: 20080101

REACTIONS (1)
  - CATARACT [None]
